FAERS Safety Report 7628261-6 (Version None)
Quarter: 2011Q3

REPORT INFORMATION
  Report Type: 
  Country: None (occurrence: None)
  Receive Date: 20110722
  Receipt Date: 20110711
  Transmission Date: 20111222
  Serious: Yes (Other)
  Sender: FDA-Public Use
  Company Number: US-JNJFOC-20110705189

PATIENT
  Sex: Female
  Weight: 58.06 kg

DRUGS (1)
  1. REMICADE [Suspect]
     Indication: CROHN'S DISEASE
     Route: 042
     Dates: start: 20101201

REACTIONS (12)
  - GASTROOESOPHAGEAL REFLUX DISEASE [None]
  - HYPOAESTHESIA ORAL [None]
  - DRUG EFFECT DECREASED [None]
  - ROAD TRAFFIC ACCIDENT [None]
  - INFUSION RELATED REACTION [None]
  - DYSPNOEA [None]
  - FISTULA [None]
  - OEDEMA MOUTH [None]
  - CROHN'S DISEASE [None]
  - INTERVERTEBRAL DISC PROTRUSION [None]
  - THROAT TIGHTNESS [None]
  - PAINFUL DEFAECATION [None]
